FAERS Safety Report 5649196-4 (Version None)
Quarter: 2008Q1

REPORT INFORMATION
  Report Type: 
  Country: None (occurrence: None)
  Receive Date: 20080304
  Receipt Date: 20080220
  Transmission Date: 20080703
  Serious: Yes (Hospitalization)
  Sender: FDA-Public Use
  Company Number: GB-BAUSCH-2008BL000738

PATIENT
  Age: 39 Year
  Sex: Male

DRUGS (4)
  1. PREDNISOLONE [Suspect]
     Indication: RENAL TRANSPLANT
  2. PREDNISOLONE [Suspect]
  3. MYCOPHENOLATE MOFETIL [Suspect]
     Indication: RENAL TRANSPLANT
  4. PROGRAF /USA/ [Suspect]
     Indication: RENAL TRANSPLANT

REACTIONS (1)
  - NOCARDIOSIS [None]
